FAERS Safety Report 13239464 (Version 3)
Quarter: 2020Q3

REPORT INFORMATION
  Report Type: Report from Study
  Country: ES (occurrence: ES)
  Receive Date: 20170216
  Receipt Date: 20170323
  Transmission Date: 20201104
  Serious: Yes (Death, Hospitalization)
  Sender: FDA-Public Use
  Company Number: ES-JNJFOC-20170208171

PATIENT
  Age: 52 Year
  Sex: Female
  Weight: 91.2 kg

DRUGS (13)
  1. TRABECTEDIN [Suspect]
     Active Substance: TRABECTEDIN
     Indication: OVARIAN CANCER
     Route: 042
     Dates: start: 20161013, end: 20170105
  2. HIBOR (BEMIPARIN SODIUM) [Concomitant]
     Active Substance: BEMIPARIN SODIUM
     Indication: THROMBOSIS PROPHYLAXIS
     Route: 058
  3. BOI?K [ASCORBIC ACID\POTASSIUM BICARBONATE] [Concomitant]
     Active Substance: ASCORBIC ACID\POTASSIUM BICARBONATE
     Indication: HYPOKALAEMIA
     Route: 048
  4. TRYPTIZOLE [Concomitant]
     Indication: BACK PAIN
     Route: 048
     Dates: start: 20161130
  5. TRABECTEDIN [Suspect]
     Active Substance: TRABECTEDIN
     Route: 042
  6. EUTIROX [Concomitant]
     Active Substance: LEVOTHYROXINE SODIUM
     Indication: HYPOTHYROIDISM
     Route: 048
  7. OMEPRAZOLE. [Concomitant]
     Active Substance: OMEPRAZOLE
     Indication: GASTROINTESTINAL DISORDER THERAPY
     Route: 048
  8. BUSCAPINA [Concomitant]
     Active Substance: BUTYLSCOPOLAMINE BROMIDE
     Indication: ABDOMINAL RIGIDITY
     Route: 048
     Dates: start: 20161130
  9. MONTELUKAST [Concomitant]
     Active Substance: MONTELUKAST SODIUM
     Indication: ASTHMA
     Route: 048
  10. TRAMADOL. [Concomitant]
     Active Substance: TRAMADOL
     Indication: ANALGESIC THERAPY
     Route: 048
  11. LYRICA [Concomitant]
     Active Substance: PREGABALIN
     Indication: ANALGESIC THERAPY
     Route: 048
  12. SIMETHICONE (DIMETHICONE) [Concomitant]
     Active Substance: DIMETHICONE
     Indication: AEROPHAGIA
     Route: 048
     Dates: start: 20161130
  13. TOPIRAMATO [Concomitant]
     Active Substance: TOPIRAMATE
     Indication: BACK PAIN
     Route: 048

REACTIONS (1)
  - Ascites [Fatal]

NARRATIVE: CASE EVENT DATE: 20170126
